FAERS Safety Report 21257707 (Version 1)
Quarter: 2022Q3

REPORT INFORMATION
  Report Type: Report from Study
  Country: ES (occurrence: ES)
  Receive Date: 20220826
  Receipt Date: 20220826
  Transmission Date: 20221026
  Serious: Yes (Other)
  Sender: FDA-Public Use
  Company Number: ES-SUN PHARMACEUTICAL INDUSTRIES LTD-2022RR-352311

PATIENT
  Age: 56 Year
  Sex: Female

DRUGS (2)
  1. GEMCITABINE [Suspect]
     Active Substance: GEMCITABINE
     Indication: Pancreatic carcinoma metastatic
     Dosage: UNK
     Route: 065
  2. PACLITAXEL [Suspect]
     Active Substance: PACLITAXEL
     Indication: Pancreatic carcinoma metastatic
     Dosage: UNK
     Route: 065

REACTIONS (5)
  - Hypertension [Unknown]
  - Oedema peripheral [Unknown]
  - Microangiopathic haemolytic anaemia [Recovering/Resolving]
  - Thrombocytopenia [Recovering/Resolving]
  - Renal injury [Recovering/Resolving]
